FAERS Safety Report 21548626 (Version 1)
Quarter: 2022Q4

REPORT INFORMATION
  Report Type: Report from Study
  Country: US (occurrence: US)
  Receive Date: 20221103
  Receipt Date: 20221103
  Transmission Date: 20230112
  Serious: No
  Sender: FDA-Public Use
  Company Number: US-ABBVIE-22K-163-4518897-00

PATIENT
  Age: 54 Year
  Sex: Male

DRUGS (1)
  1. IMBRUVICA [Suspect]
     Active Substance: IBRUTINIB
     Indication: Chronic lymphocytic leukaemia
     Route: 048

REACTIONS (7)
  - Arthropod bite [Unknown]
  - Rash [Unknown]
  - Constipation [Unknown]
  - Diarrhoea [Unknown]
  - Dry mouth [Unknown]
  - Gingival pain [Unknown]
  - Erythema [Unknown]

NARRATIVE: CASE EVENT DATE: 20220401
